FAERS Safety Report 19432042 (Version 1)
Quarter: 2021Q2

REPORT INFORMATION
  Report Type: Spontaneous
  Country: US (occurrence: US)
  Receive Date: 20210618
  Receipt Date: 20210618
  Transmission Date: 20210717
  Serious: Yes (Other)
  Sender: FDA-Public Use
  Company Number: US-DRREDDYS-LIT/USA/21/0136551

PATIENT
  Age: 14 Year
  Sex: Male

DRUGS (1)
  1. LORAZEPAM INJECTION USP, 2 MG/ML AND 4 MG/ML [Suspect]
     Active Substance: LORAZEPAM
     Indication: SEIZURE
     Dosage: THREE DOSES OF IV LORAZEPAM 4MG
     Route: 042

REACTIONS (1)
  - Drug ineffective [Unknown]
